FAERS Safety Report 8881049 (Version 1)
Quarter: 2012Q4

REPORT INFORMATION
  Report Type: 
  Country: JP (occurrence: JP)
  Receive Date: 20121101
  Receipt Date: 20121101
  Transmission Date: 20130627
  Serious: Yes (Death)
  Sender: FDA-Public Use
  Company Number: JP-009507513-1210JPN014270

PATIENT
  Sex: Female

DRUGS (1)
  1. MARVELON [Suspect]
     Dosage: 1 DF, qd
     Route: 065

REACTIONS (1)
  - Embolism venous [Fatal]
